FAERS Safety Report 23553600 (Version 1)
Quarter: 2024Q1

REPORT INFORMATION
  Report Type: Spontaneous
  Country: US (occurrence: US)
  Receive Date: 20240222
  Receipt Date: 20240222
  Transmission Date: 20240410
  Serious: No
  Sender: FDA-Public Use
  Company Number: US-PFIZER INC-PV202400023780

PATIENT
  Age: 81 Year
  Sex: Male

DRUGS (4)
  1. SPIRONOLACTONE [Suspect]
     Active Substance: SPIRONOLACTONE
     Dosage: UNK
     Dates: start: 202312
  2. LASIX [Suspect]
     Active Substance: FUROSEMIDE
     Dosage: UNK
  3. ISOSORBIDE [Suspect]
     Active Substance: ISOSORBIDE
     Dosage: UNK
  4. ENTRESTO [Suspect]
     Active Substance: SACUBITRIL\VALSARTAN
     Dosage: UNK

REACTIONS (2)
  - Dizziness [Recovering/Resolving]
  - Gait disturbance [Recovering/Resolving]
